FAERS Safety Report 5084255-9 (Version None)
Quarter: 2006Q3

REPORT INFORMATION
  Report Type: 
  Country: None (occurrence: None)
  Receive Date: 20060821
  Receipt Date: 20060605
  Transmission Date: 20061208
  Serious: No
  Sender: FDA-Public Use
  Company Number: US-BRISTOL-MYERS SQUIBB COMPANY-13401914

PATIENT
  Sex: Female

DRUGS (2)
  1. TEQUIN [Suspect]
     Indication: BRONCHITIS
  2. MELLARIL [Concomitant]
     Dosage: AT HOUR OF SLEEP

REACTIONS (1)
  - RECTAL HAEMORRHAGE [None]
